FAERS Safety Report 6207732-3 (Version None)
Quarter: 2009Q2

REPORT INFORMATION
  Report Type: 
  Country: None (occurrence: None)
  Receive Date: 20090526
  Receipt Date: 20090514
  Transmission Date: 20091009
  Serious: Yes (Life-Threatening)
  Sender: FDA-Public Use
  Company Number: 2009-01954

PATIENT
  Age: 80 Year
  Sex: Male

DRUGS (1)
  1. VELCADE [Suspect]
     Indication: DRUG USE FOR UNKNOWN INDICATION
     Dosage: 1 MG/M2, INTRAVENOUS
     Route: 042
     Dates: start: 20090202, end: 20090202

REACTIONS (2)
  - HAEMATURIA [None]
  - URINARY INCONTINENCE [None]
